FAERS Safety Report 8422010-X (Version None)
Quarter: 2012Q2

REPORT INFORMATION
  Report Type: 
  Country: None (occurrence: None)
  Receive Date: 20120323
  Receipt Date: 20111215
  Transmission Date: 20120825
  Serious: Yes (Hospitalization)
  Sender: FDA-Public Use
  Company Number: 163-21880-11122163

PATIENT
  Age: 78 Year
  Sex: Male
  Weight: 58 kg

DRUGS (1)
  1. LENALIDOMIDE [Suspect]
     Indication: MULTIPLE MYELOMA
     Dosage: 10 MG, DAILY, PO
     Route: 048
     Dates: start: 20110725, end: 20111201

REACTIONS (1)
  - ABDOMINAL PAIN [None]
